APPROVED DRUG PRODUCT: DIAZEPAM
Active Ingredient: DIAZEPAM
Strength: 5MG/ML
Dosage Form/Route: INJECTABLE;INJECTION
Application: A071613 | Product #001
Applicant: WARNER CHILCOTT DIV WARNER LAMBERT CO
Approved: Oct 22, 1987 | RLD: No | RS: No | Type: DISCN